FAERS Safety Report 9787845 (Version 1)
Quarter: 2013Q4

REPORT INFORMATION
  Report Type: Spontaneous
  Country: US (occurrence: None)
  Receive Date: 20131227
  Receipt Date: 20131227
  Transmission Date: 20140711
  Serious: Yes (Other)
  Sender: FDA-Public Use
  Company Number: None

PATIENT
  Sex: Female
  Weight: 49.9 kg

DRUGS (10)
  1. GILENYA (FINGOLIMOD) CAPSULES 0.5MG [Suspect]
     Indication: MULTIPLE SCLEROSIS
     Dosage: 0.5MG  1 PILL  ONCE DAILY  MOUTH
     Route: 048
     Dates: start: 20131001, end: 20131127
  2. BETIMOL [Concomitant]
  3. LUMIGAN [Concomitant]
  4. CLONAZEPAN [Concomitant]
  5. IMIPRAMINE [Concomitant]
  6. EVISTA [Concomitant]
  7. SIMVASTIN [Concomitant]
  8. VITAMINS MULT. [Concomitant]
  9. VITAMIN D 2000 [Concomitant]
  10. CALCIUM [Concomitant]

REACTIONS (1)
  - Intraocular pressure increased [None]
